FAERS Safety Report 5868417-6 (Version None)
Quarter: 2008Q3

REPORT INFORMATION
  Report Type: 
  Country: None (occurrence: None)
  Receive Date: 20080828
  Receipt Date: 20080818
  Transmission Date: 20090109
  Serious: Yes (Life-Threatening, Other)
  Sender: FDA-Public Use
  Company Number: MC200800354

PATIENT
  Age: 61 Year
  Sex: Female
  Weight: 136.1 kg

DRUGS (3)
  1. ANGIOMAX [Suspect]
     Indication: PERCUTANEOUS CORONARY INTERVENTION
     Dosage: BOLUS, INTRAVENOUS; INTRAVENOUS
     Route: 042
     Dates: start: 20080804, end: 20080804
  2. ANGIOMAX [Suspect]
     Indication: PERCUTANEOUS CORONARY INTERVENTION
     Dosage: BOLUS, INTRAVENOUS; INTRAVENOUS
     Route: 042
     Dates: start: 20080804
  3. ASPIRIN [Concomitant]

REACTIONS (5)
  - CARDIAC ARREST [None]
  - CORONARY ARTERY THROMBOSIS [None]
  - DRUG INEFFECTIVE [None]
  - EXTRAVASATION [None]
  - PHARMACEUTICAL PRODUCT COMPLAINT [None]
